FAERS Safety Report 15563323 (Version 5)
Quarter: 2019Q4

REPORT INFORMATION
  Report Type: Spontaneous
  Country: FR (occurrence: FR)
  Receive Date: 20181029
  Receipt Date: 20191107
  Transmission Date: 20200122
  Serious: Yes (Death, Other)
  Sender: FDA-Public Use
  Company Number: FR-PFIZER INC-2018441866

PATIENT
  Age: 92 Year
  Sex: Male
  Weight: 75 kg

DRUGS (6)
  1. RAMIPRIL. [Suspect]
     Active Substance: RAMIPRIL
     Indication: HYPERTENSION
     Dosage: 1 DOSAGE FORM, BID ( DF= 3.75MG-0-2.5MG (3.75 MG IN MORNING AND 2.5MG IN EVENING).)
     Route: 048
     Dates: end: 20181001
  2. FINASTERIDE. [Suspect]
     Active Substance: FINASTERIDE
     Indication: BENIGN PROSTATIC HYPERPLASIA
     Dosage: 60 MILLIGRAM, BID (1 DF= 60MG (1-1/2-0 = ONE IN MORNING AND HALF IN AFTERNOON))
     Route: 048
     Dates: end: 20180925
  3. UVEDOSE [Concomitant]
     Active Substance: CHOLECALCIFEROL
     Dosage: 10000 INTERNATIONAL UNIT
     Route: 048
  4. ELIQUIS [Suspect]
     Active Substance: APIXABAN
     Indication: CEREBROVASCULAR ACCIDENT PROPHYLAXIS
     Dosage: 2 DOSAGE FORM PER DAY
     Route: 048
     Dates: end: 20181001
  5. DOLIPRANE [Concomitant]
     Active Substance: ACETAMINOPHEN
     Dosage: UNK
     Route: 065
  6. BISOCE [Suspect]
     Active Substance: BISOPROLOL
     Indication: HYPERTENSION
     Dosage: 1 DOSAGE FORM PER DAY
     Route: 048

REACTIONS (6)
  - Acute kidney injury [Fatal]
  - Agitation [Fatal]
  - Dehydration [Fatal]
  - Fall [Fatal]
  - Coma [Fatal]
  - Confusional state [Fatal]

NARRATIVE: CASE EVENT DATE: 20180920
